FAERS Safety Report 24565316 (Version 1)
Quarter: 2024Q4

REPORT INFORMATION
  Report Type: Spontaneous
  Country: VE (occurrence: VE)
  Receive Date: 20241030
  Receipt Date: 20241030
  Transmission Date: 20250114
  Serious: Yes (Hospitalization, Other)
  Sender: PFIZER
  Company Number: VE-PFIZER INC-PV202400138739

PATIENT
  Age: 67 Year
  Sex: Male

DRUGS (2)
  1. INLYTA [Suspect]
     Active Substance: AXITINIB
     Indication: Renal cell carcinoma
     Dosage: 10 MG
  2. RADIUM [Concomitant]
     Active Substance: RADIUM
     Dosage: UNK

REACTIONS (10)
  - Brain oedema [Unknown]
  - Neoplasm progression [Unknown]
  - Nervous system disorder [Unknown]
  - Road traffic accident [Unknown]
  - Headache [Unknown]
  - Hypertension [Unknown]
  - Loss of personal independence in daily activities [Unknown]
  - Behaviour disorder [Unknown]
  - Depression [Unknown]
  - Mucosal inflammation [Unknown]
